FAERS Safety Report 24080152 (Version 1)
Quarter: 2024Q3

REPORT INFORMATION
  Report Type: Spontaneous
  Country: MX (occurrence: MX)
  Receive Date: 20240711
  Receipt Date: 20240711
  Transmission Date: 20241017
  Serious: Yes (Other)
  Sender: BAYER
  Company Number: MX-BAYER-2024A100085

PATIENT
  Sex: Female

DRUGS (1)
  1. MIRENA [Suspect]
     Active Substance: LEVONORGESTREL
     Dosage: 20?G/DAY
     Route: 015
     Dates: start: 202401

REACTIONS (3)
  - Mass [None]
  - Heavy menstrual bleeding [Recovered/Resolved]
  - Vaginal discharge [None]

NARRATIVE: CASE EVENT DATE: 20240101
